FAERS Safety Report 7590544-6 (Version None)
Quarter: 2011Q3

REPORT INFORMATION
  Report Type: 
  Country: None (occurrence: None)
  Receive Date: 20110705
  Receipt Date: 20110624
  Transmission Date: 20111222
  Serious: Yes (Hospitalization)
  Sender: FDA-Public Use
  Company Number: GB-TEVA-288815ISR

PATIENT
  Age: 15 Year
  Sex: Female

DRUGS (2)
  1. SERTRALINE HYDROCHLORIDE [Suspect]
  2. CLOZAPINE [Suspect]
     Dosage: 50 MILLIGRAM;
     Route: 048
     Dates: start: 20110517, end: 20110614

REACTIONS (2)
  - NEUTROPHIL COUNT DECREASED [None]
  - NEUTROPENIA [None]
